FAERS Safety Report 17677136 (Version 2)
Quarter: 2020Q2

REPORT INFORMATION
  Report Type: Spontaneous
  Country: US (occurrence: US)
  Receive Date: 20200416
  Receipt Date: 20200422
  Transmission Date: 20200714
  Serious: No
  Sender: FDA-Public Use
  Company Number: US-PFIZER INC-2020129114

PATIENT
  Age: 65 Year
  Sex: Male

DRUGS (1)
  1. TALZENNA [Suspect]
     Active Substance: TALAZOPARIB TOSYLATE
     Indication: PROSTATE CANCER METASTATIC
     Dosage: 1 MG, UNK (30 CAPSULES PER MONTH)

REACTIONS (4)
  - Malaise [Unknown]
  - Neoplasm progression [Unknown]
  - Off label use [Unknown]
  - Product use in unapproved indication [Unknown]
